FAERS Safety Report 4567081-6 (Version None)
Quarter: 2005Q1

REPORT INFORMATION
  Report Type: 
  Country: None (occurrence: None)
  Receive Date: 20050201
  Receipt Date: 20050124
  Transmission Date: 20050727
  Serious: Yes (Other)
  Sender: FDA-Public Use
  Company Number: CA-ROCHE-393636

PATIENT

DRUGS (1)
  1. TAMIFLU [Suspect]
     Indication: PROPHYLAXIS
     Route: 048
     Dates: start: 20050113, end: 20050123

REACTIONS (1)
  - ANGIONEUROTIC OEDEMA [None]
